FAERS Safety Report 8746401 (Version 5)
Quarter: 2012Q4

REPORT INFORMATION
  Report Type: 
  Country: GB (occurrence: GB)
  Receive Date: 20120827
  Receipt Date: 20121009
  Transmission Date: 20130627
  Serious: Yes (Hospitalization, Other)
  Sender: FDA-Public Use
  Company Number: GB-SANOFI-AVENTIS-2012SA060915

PATIENT
  Age: 69 Year
  Sex: Female

DRUGS (12)
  1. LANSOPRAZOLE [Suspect]
     Indication: DRUG USE FOR UNKNOWN INDICATION
     Route: 065
  2. ISOSORBIDE MONONITRATE [Suspect]
     Indication: DRUG USE FOR UNKNOWN INDICATION
     Route: 065
  3. FUROSEMIDE [Suspect]
     Indication: DRUG USE FOR UNKNOWN INDICATION
     Route: 065
  4. PAROXETINE [Suspect]
     Indication: DRUG USE FOR UNKNOWN INDICATION
     Route: 065
  5. ZOCOR [Suspect]
     Indication: DRUG USE FOR UNKNOWN INDICATION
     Route: 048
  6. GLICLAZIDE [Suspect]
     Indication: DRUG USE FOR UNKNOWN INDICATION
     Route: 065
  7. SALBUTAMOL [Suspect]
     Indication: DRUG USE FOR UNKNOWN INDICATION
     Dosage: Two puffs when required.
     Route: 065
  8. HYOSCINE BUTYLBROMIDE [Suspect]
     Indication: DRUG USE FOR UNKNOWN INDICATION
     Route: 065
  9. ASPIRIN [Suspect]
     Indication: DRUG USE FOR UNKNOWN INDICATION
     Route: 065
  10. FELODIPINE [Suspect]
     Indication: DRUG USE FOR UNKNOWN INDICATION
     Route: 065
  11. CYCLIZINE [Suspect]
     Indication: DRUG USE FOR UNKNOWN INDICATION
     Route: 065
  12. DIAZEPAM [Suspect]
     Indication: DRUG USE FOR UNKNOWN INDICATION
     Route: 065

REACTIONS (1)
  - Angioedema [Unknown]
